FAERS Safety Report 13887047 (Version 2)
Quarter: 2017Q3

REPORT INFORMATION
  Report Type: Spontaneous
  Country: US (occurrence: US)
  Receive Date: 20170821
  Receipt Date: 20170912
  Transmission Date: 20171127
  Serious: Yes (Hospitalization, Other)
  Sender: FDA-Public Use
  Company Number: US-BAYER-2017-153042

PATIENT
  Sex: Female

DRUGS (1)
  1. ALKA-SELTZER PLUS COLD FORMULA (CHERRY BURST) [Suspect]
     Active Substance: ASPIRIN\CHLORPHENIRAMINE MALEATE\PHENYLEPHRINE BITARTRATE
     Dosage: UNK
     Route: 065

REACTIONS (4)
  - Product colour issue [None]
  - Adverse drug reaction [Recovered/Resolved]
  - Diabetic complication [Recovered/Resolved]
  - Loss of consciousness [Recovered/Resolved]

NARRATIVE: CASE EVENT DATE: 2016
